FAERS Safety Report 6616925-2 (Version None)
Quarter: 2010Q1

REPORT INFORMATION
  Report Type: 
  Country: None (occurrence: None)
  Receive Date: 20100301
  Receipt Date: 20100222
  Transmission Date: 20100710
  Serious: Yes (Hospitalization, Other)
  Sender: FDA-Public Use
  Company Number: ALL1-2010-00904

PATIENT
  Age: 61 Year
  Sex: Female

DRUGS (9)
  1. FOSRENOL [Suspect]
     Indication: HYPERPHOSPHATAEMIA
     Dosage: 1000 MG, 7 X DAILY, ORAL
     Route: 048
     Dates: start: 20080301
  2. REGLAN [Suspect]
     Indication: DYSPEPSIA
     Dosage: 1X/DAY;QD;ORAL
     Route: 048
     Dates: start: 20060101, end: 20090601
  3. TYLENOL /00020001/(PARACETAMOL) [Concomitant]
  4. ALLOPURINOL [Concomitant]
  5. LORATADINE [Concomitant]
  6. TRICOR /00090101/ (ADENOSINE) [Concomitant]
  7. ALPRAZOLAM [Concomitant]
  8. ATENOLOL [Concomitant]
  9. ZEMPLAR [Concomitant]

REACTIONS (8)
  - ABDOMINAL HERNIA [None]
  - BARRETT'S OESOPHAGUS [None]
  - BLOOD TRIGLYCERIDES INCREASED [None]
  - DRUG INEFFECTIVE [None]
  - OVERDOSE [None]
  - PERITONEAL DIALYSIS [None]
  - TARDIVE DYSKINESIA [None]
  - VASCULAR GRAFT OCCLUSION [None]
